FAERS Safety Report 6029908-0 (Version None)
Quarter: 2009Q1

REPORT INFORMATION
  Report Type: 
  Country: None (occurrence: None)
  Receive Date: 20090107
  Receipt Date: 20090106
  Transmission Date: 20090719
  Serious: Yes (Other)
  Sender: FDA-Public Use
  Company Number: US-JNJFOC-20081003898

PATIENT
  Sex: Female
  Weight: 58.97 kg

DRUGS (11)
  1. FENTANYL TRANSDERMAL SYSTEM [Suspect]
     Indication: PAIN
     Route: 062
  2. FENTANYL TRANSDERMAL SYSTEM [Suspect]
     Indication: INTERVERTEBRAL DISC PROTRUSION
     Route: 062
  3. FENTANYL TRANSDERMAL SYSTEM [Suspect]
     Indication: RHEUMATOID ARTHRITIS
     Route: 062
  4. FENTANYL TRANSDERMAL SYSTEM [Suspect]
     Indication: OSTEOARTHRITIS
     Route: 062
  5. PREDNISONE [Concomitant]
     Indication: OSTEOARTHRITIS
     Route: 048
  6. NEURONTIN [Concomitant]
     Route: 048
  7. NEURONTIN [Concomitant]
     Indication: NEUROPATHY PERIPHERAL
     Route: 048
  8. CELEBREX [Concomitant]
     Indication: OSTEOARTHRITIS
     Route: 048
  9. ELAVIL [Concomitant]
     Indication: SLEEP DISORDER
     Route: 048
  10. NEXIUM [Concomitant]
     Indication: GASTROOESOPHAGEAL REFLUX DISEASE
     Route: 048
  11. PERCOCET [Concomitant]
     Indication: BREAKTHROUGH PAIN
     Dosage: 7.5 MG/500 MG AS NEEDED
     Route: 048

REACTIONS (3)
  - APPLICATION SITE RASH [None]
  - APPLICATION SITE VESICLES [None]
  - RHEUMATOID ARTHRITIS [None]
